FAERS Safety Report 15186480 (Version 2)
Quarter: 2019Q1

REPORT INFORMATION
  Report Type: Report from Study
  Country: US (occurrence: US)
  Receive Date: 20180723
  Receipt Date: 20190130
  Transmission Date: 20190417
  Serious: No
  Sender: FDA-Public Use
  Company Number: US-EXELIXIS-CABO-18013417

PATIENT
  Sex: Female

DRUGS (3)
  1. CABOMETYX [Suspect]
     Active Substance: CABOZANTINIB S-MALATE
     Dosage: 20 MG, QD
     Route: 048
     Dates: start: 201806
  2. CABOMETYX [Suspect]
     Active Substance: CABOZANTINIB S-MALATE
     Indication: RENAL CANCER
     Dosage: 40 MG, QD
     Route: 048
     Dates: start: 20171207, end: 20180105
  3. CABOMETYX [Suspect]
     Active Substance: CABOZANTINIB S-MALATE
     Dosage: 20 MG, QD
     Route: 048
     Dates: start: 20180208

REACTIONS (17)
  - Ingrowing nail [Unknown]
  - Onychalgia [Unknown]
  - Weight decreased [Unknown]
  - Impaired healing [Unknown]
  - Malaise [Unknown]
  - Gait disturbance [Unknown]
  - Hypoaesthesia [Unknown]
  - Back pain [Unknown]
  - Oral pain [Unknown]
  - Stomatitis [Unknown]
  - Viral infection [Recovered/Resolved]
  - Hyperkeratosis [Unknown]
  - Bone pain [Unknown]
  - Abdominal pain upper [Recovered/Resolved]
  - Skin ulcer [Unknown]
  - Pain in extremity [Not Recovered/Not Resolved]
  - Malignant neoplasm progression [Unknown]
